FAERS Safety Report 4575271-1 (Version None)
Quarter: 2005Q1

REPORT INFORMATION
  Report Type: 
  Country: None (occurrence: None)
  Receive Date: 20050127
  Receipt Date: 20050127
  Transmission Date: 20050727
  Serious: No
  Sender: FDA-Public Use
  Company Number: None

PATIENT
  Sex: Male
  Weight: 9.0719 kg

DRUGS (2)
  1. STRATTERA [Suspect]
     Indication: ATTENTION DEFICIT/HYPERACTIVITY DISORDER
     Dosage: 2 PO QD
     Route: 048
     Dates: start: 20041203, end: 60041210
  2. FISH OIL  TABLETS/CAPSULES [Concomitant]

REACTIONS (1)
  - CONTUSION [None]
